FAERS Safety Report 15215531 (Version 1)
Quarter: 2018Q3

REPORT INFORMATION
  Report Type: Spontaneous
  Country: US (occurrence: US)
  Receive Date: 20180730
  Receipt Date: 20180730
  Transmission Date: 20181010
  Serious: No
  Sender: FDA-Public Use
  Company Number: US-ENDO PHARMACEUTICALS INC-2018-014311

PATIENT
  Sex: Male
  Weight: 87.98 kg

DRUGS (2)
  1. SUMAVEL DOSEPRO [Suspect]
     Active Substance: SUMATRIPTAN SUCCINATE
     Dosage: UNK MG, AS DIRECTED
     Route: 065
     Dates: start: 2015
  2. SUMAVEL DOSEPRO [Suspect]
     Active Substance: SUMATRIPTAN SUCCINATE
     Indication: MIGRAINE
     Dosage: UNK, AS DIRECTED, INJECTED INTO THIGH OR ABDOMEN
     Route: 058

REACTIONS (5)
  - Injection site pain [Unknown]
  - Drug ineffective [Recovered/Resolved]
  - Device malfunction [Recovered/Resolved]
  - Injection site erythema [Unknown]
  - Accidental exposure to product [Recovered/Resolved]

NARRATIVE: CASE EVENT DATE: 2015
